FAERS Safety Report 9541916 (Version 5)
Quarter: 2014Q2

REPORT INFORMATION
  Report Type: Spontaneous
  Country: DE (occurrence: DE)
  Receive Date: 20130923
  Receipt Date: 20140408
  Transmission Date: 20141212
  Serious: Yes (Hospitalization, Other)
  Sender: FDA-Public Use
  Company Number: PHHY2013DE102601

PATIENT
  Sex: Male

DRUGS (10)
  1. LOCOL [Suspect]
     Indication: HYPERCHOLESTEROLAEMIA
     Dosage: 40 MG, DAILY
     Route: 048
     Dates: start: 200812
  2. CERTICAN [Interacting]
     Indication: PROPHYLAXIS AGAINST TRANSPLANT REJECTION
     Dosage: 0.75 MG, BID, DAILY
     Route: 048
     Dates: start: 20100301
  3. SANDIMMUN [Suspect]
     Indication: PROPHYLAXIS AGAINST TRANSPLANT REJECTION
     Dosage: 200 MG, BID
     Dates: start: 20081216, end: 20100301
  4. PRAVASIN [Suspect]
     Indication: HYPERCHOLESTEROLAEMIA
     Dosage: UNK UKN, UNK
  5. CELLCEPT [Suspect]
     Indication: PROPHYLAXIS AGAINST TRANSPLANT REJECTION
     Dosage: 2000 MG, DAILY
     Route: 048
     Dates: start: 2008
  6. DECORTIN [Concomitant]
     Dosage: UNK UKN, UNK
  7. ASS [Concomitant]
     Dosage: UNK UKN, UNK
  8. DILZEM [Concomitant]
     Dosage: UNK UKN, UNK
  9. OMACOR [Concomitant]
     Dosage: UNK UKN, UNK
  10. BELOC [Concomitant]
     Dosage: 47 MG, DAILY
     Route: 048
     Dates: start: 2008

REACTIONS (13)
  - Herpes zoster [Recovered/Resolved]
  - Cholecystitis [Recovered/Resolved]
  - Hepatitis [Recovered/Resolved]
  - Pseudomembranous colitis [Recovered/Resolved]
  - Drug interaction [Not Recovered/Not Resolved]
  - Otitis media [Recovered/Resolved]
  - Staphylococcal infection [Recovered/Resolved]
  - Rash pustular [Recovered/Resolved]
  - Blood cholesterol increased [Recovered/Resolved]
  - Myalgia [Not Recovered/Not Resolved]
  - Pain in extremity [Not Recovered/Not Resolved]
  - Gait disturbance [Not Recovered/Not Resolved]
  - Dysstasia [Not Recovered/Not Resolved]
